FAERS Safety Report 15015005 (Version 2)
Quarter: 2018Q2

REPORT INFORMATION
  Report Type: Report from Study
  Country: US (occurrence: US)
  Receive Date: 20180615
  Receipt Date: 20180619
  Transmission Date: 20180711
  Serious: Yes (Other)
  Sender: FDA-Public Use
  Company Number: US-ROCHE-2138848

PATIENT

DRUGS (12)
  1. CYTOSINE ARABINOSIDE [Suspect]
     Active Substance: CYTARABINE
     Indication: OCULAR PEMPHIGOID
     Route: 065
  2. TACROLIMUS. [Suspect]
     Active Substance: TACROLIMUS
     Indication: OCULAR PEMPHIGOID
     Route: 065
  3. CYCLOPHOSPHAMIDE. [Suspect]
     Active Substance: CYCLOPHOSPHAMIDE
     Indication: OCULAR PEMPHIGOID
     Route: 065
  4. MYCOPHENOLATE MOFETIL. [Suspect]
     Active Substance: MYCOPHENOLATE MOFETIL
     Indication: OCULAR PEMPHIGOID
     Route: 065
  5. IMMUNOGLOBULINE [Suspect]
     Active Substance: HUMAN IMMUNOGLOBULIN G
     Indication: OCULAR PEMPHIGOID
     Route: 042
  6. DAPSONE. [Suspect]
     Active Substance: DAPSONE
     Indication: OCULAR PEMPHIGOID
     Route: 048
  7. RITUXIMAB. [Suspect]
     Active Substance: RITUXIMAB
     Indication: OCULAR PEMPHIGOID
     Route: 065
  8. METHOTREXATE. [Suspect]
     Active Substance: METHOTREXATE
     Indication: OCULAR PEMPHIGOID
     Route: 065
  9. AZATHIOPRINE. [Suspect]
     Active Substance: AZATHIOPRINE
     Indication: OCULAR PEMPHIGOID
     Route: 065
  10. PREDNISONE. [Suspect]
     Active Substance: PREDNISONE
     Indication: OCULAR PEMPHIGOID
     Route: 048
  11. INFLIXIMAB [Suspect]
     Active Substance: INFLIXIMAB
     Indication: OCULAR PEMPHIGOID
     Route: 065
  12. ADALIMUMAB [Suspect]
     Active Substance: ADALIMUMAB
     Indication: OCULAR PEMPHIGOID
     Route: 065

REACTIONS (6)
  - Liver function test increased [Unknown]
  - Anaemia [Unknown]
  - Urinary retention [Unknown]
  - Myocardial infarction [Unknown]
  - Drug intolerance [Unknown]
  - Tremor [Unknown]
